FAERS Safety Report 4597042-2 (Version None)
Quarter: 2005Q1

REPORT INFORMATION
  Report Type: 
  Country: None (occurrence: None)
  Receive Date: 20050301
  Receipt Date: 20050214
  Transmission Date: 20050727
  Serious: Yes (Other)
  Sender: FDA-Public Use
  Company Number: 2004039973

PATIENT
  Age: 28 Year
  Sex: Female
  Weight: 81.6475 kg

DRUGS (3)
  1. SUDAFED SINUS + ALLERGY (CHLORPHENIRAMINE PSEUDOEPHEDRINE) [Suspect]
     Indication: SINUS CONGESTION
     Dosage: 2-4 TABS QD, ORAL
     Route: 048
     Dates: start: 20040401, end: 20040801
  2. MULTIVITAMINS (ASCORBIC ACID, ERGOCALCIFEROL, FOLIC ACID, NICOTINAMINE [Concomitant]
  3. DIPHENHYDRAMINE (DIPHENHYDRAMINE) [Concomitant]

REACTIONS (7)
  - ABORTION INDUCED [None]
  - CERVICAL INCOMPETENCE [None]
  - DRUG EXPOSURE DURING PREGNANCY [None]
  - INDUCED LABOUR [None]
  - PREGNANCY INDUCED HYPERTENSION [None]
  - PREMATURE RUPTURE OF MEMBRANES [None]
  - VAGINAL HAEMORRHAGE [None]
